FAERS Safety Report 7929695-2 (Version None)
Quarter: 2011Q4

REPORT INFORMATION
  Report Type: 
  Country: None (occurrence: None)
  Receive Date: 20111121
  Receipt Date: 20111109
  Transmission Date: 20120403
  Serious: Yes (Hospitalization)
  Sender: FDA-Public Use
  Company Number: US-PFIZER INC-2011219497

PATIENT
  Sex: Male
  Weight: 74.4 kg

DRUGS (4)
  1. TEMSIROLIMUS [Suspect]
     Indication: COLORECTAL CANCER
     Dosage: 15 MG, WEEKLY
     Route: 042
     Dates: start: 20110629, end: 20110914
  2. CALCIUM [Concomitant]
     Indication: NUTRITIONAL SUPPORT
     Dosage: UNK
     Route: 048
     Dates: start: 20110701
  3. CAPECITABINE [Suspect]
     Indication: COLORECTAL CANCER
     Dosage: 2000 MG, CYCLIC 14 DAYS ON 7 DAYS OFF
     Route: 048
     Dates: start: 20110629, end: 20110914
  4. COZAAR [Concomitant]
     Indication: BLOOD PRESSURE
     Dosage: UNK
     Route: 048
     Dates: start: 20110701

REACTIONS (2)
  - HYPONATRAEMIA [None]
  - ASCITES [None]
